FAERS Safety Report 9599663 (Version 1)
Quarter: 2013Q4

REPORT INFORMATION
  Report Type: Spontaneous
  Country: US (occurrence: US)
  Receive Date: 20131004
  Receipt Date: 20131004
  Transmission Date: 20140711
  Serious: No
  Sender: FDA-Public Use
  Company Number: US-AMGEN-USASP2013031023

PATIENT
  Age: 64 Year
  Sex: Female
  Weight: 65.76 kg

DRUGS (7)
  1. ENBREL [Suspect]
     Indication: PRODUCT USED FOR UNKNOWN INDICATION
     Dosage: 50 MG, 2 TIMES/WK FOR 3 MONTHS
     Route: 058
  2. ALPRAZOLAM [Concomitant]
     Dosage: 0.25 MG, UNK
     Route: 048
  3. ATORVASTATIN [Concomitant]
     Dosage: 10 MG, UNK
     Route: 048
  4. HYDROCHLOROTH [Concomitant]
     Dosage: 25 MG, UNK
     Route: 048
  5. POTASSIUM CHLORIDE [Concomitant]
     Dosage: 10 MEQ, UNK
     Route: 048
  6. COQ-10 [Concomitant]
     Dosage: 100 MG, UNK
     Route: 048
  7. FOLIC ACID [Concomitant]
     Dosage: UNK
     Route: 048

REACTIONS (3)
  - Injection site swelling [Unknown]
  - Injection site reaction [Unknown]
  - Injection site erythema [Unknown]
